FAERS Safety Report 14763089 (Version 1)
Quarter: 2018Q2

REPORT INFORMATION
  Report Type: Spontaneous
  Country: US (occurrence: US)
  Receive Date: 20180409
  Receipt Date: 20180409
  Transmission Date: 20180711
  Serious: Yes (Hospitalization)
  Sender: FDA-Public Use
  Company Number: None

PATIENT
  Age: 54 Year
  Sex: Male
  Weight: 88.45 kg

DRUGS (1)
  1. EYLEA [Suspect]
     Active Substance: AFLIBERCEPT
     Dosage: ?          OTHER DOSE:PT IS IN CLINICAL ;?

REACTIONS (13)
  - Transferrin saturation decreased [None]
  - Red cell distribution width increased [None]
  - Haemoglobin decreased [None]
  - Prothrombin time prolonged [None]
  - Mean cell volume decreased [None]
  - Mean platelet volume decreased [None]
  - Haematocrit decreased [None]
  - Blood glucose decreased [None]
  - C-reactive protein increased [None]
  - Hypochromic anaemia [None]
  - Blood iron decreased [None]
  - Activated partial thromboplastin time prolonged [None]
  - Gangrene [None]

NARRATIVE: CASE EVENT DATE: 20180305
